FAERS Safety Report 19642465 (Version 1)
Quarter: 2021Q3

REPORT INFORMATION
  Report Type: Spontaneous
  Country: FR (occurrence: FR)
  Receive Date: 20210731
  Receipt Date: 20210731
  Transmission Date: 20211014
  Serious: Yes (Other)
  Sender: FDA-Public Use
  Company Number: FR-ACCORD-233497

PATIENT
  Age: 68 Year
  Sex: Female

DRUGS (5)
  1. EMEND [Concomitant]
     Active Substance: APREPITANT
     Dosage: CAPSULE
     Route: 048
     Dates: start: 20200222, end: 20200224
  2. ONDANSETRON [Concomitant]
     Active Substance: ONDANSETRON
     Route: 048
     Dates: start: 20200222, end: 202002
  3. CARBOPLATIN. [Suspect]
     Active Substance: CARBOPLATIN
     Indication: LUNG ADENOCARCINOMA
     Route: 042
     Dates: start: 20200222, end: 20200222
  4. PEMBROLIZUMAB. [Concomitant]
     Active Substance: PEMBROLIZUMAB
     Route: 042
     Dates: start: 20200222, end: 20200222
  5. PEMETREXED. [Concomitant]
     Active Substance: PEMETREXED
     Indication: LUNG ADENOCARCINOMA
     Route: 042
     Dates: start: 20200222, end: 20200222

REACTIONS (1)
  - Toxic skin eruption [Recovered/Resolved]

NARRATIVE: CASE EVENT DATE: 20200222
